FAERS Safety Report 19714056 (Version 2)
Quarter: 2021Q3

REPORT INFORMATION
  Report Type: Spontaneous
  Country: US (occurrence: US)
  Receive Date: 20210818
  Receipt Date: 20210826
  Transmission Date: 20211014
  Serious: Yes (Death, Hospitalization, Other)
  Sender: FDA-Public Use
  Company Number: US-MTPC-MTDA2021-0019465

PATIENT
  Age: 69 Year
  Sex: Male

DRUGS (3)
  1. RADICAVA [Suspect]
     Active Substance: EDARAVONE
     Dosage: STANDARD DOISING
     Route: 065
     Dates: start: 20210728, end: 20210806
  2. RILUZOLE. [Suspect]
     Active Substance: RILUZOLE
     Indication: PRODUCT USED FOR UNKNOWN INDICATION
     Dosage: UNK
     Route: 048
  3. RADICAVA [Suspect]
     Active Substance: EDARAVONE
     Indication: AMYOTROPHIC LATERAL SCLEROSIS
     Dosage: 60 MILLIGRAM OVER 60 MINS QD  FOR 14 DAYS OUT OF 14?DAY DRUG?FREE PERIOD
     Route: 042
     Dates: start: 20210727, end: 20210805

REACTIONS (2)
  - Respiratory distress [Fatal]
  - Pneumonia [Fatal]

NARRATIVE: CASE EVENT DATE: 20210816
